FAERS Safety Report 20069011 (Version 2)
Quarter: 2021Q4

REPORT INFORMATION
  Report Type: Spontaneous
  Country: US (occurrence: US)
  Receive Date: 20211115
  Receipt Date: 20211124
  Transmission Date: 20220303
  Serious: Yes (Other)
  Sender: FDA-Public Use
  Company Number: US-PFIZER INC-202101566881

PATIENT
  Age: 43 Year
  Sex: Female

DRUGS (2)
  1. ARGATROBAN [Suspect]
     Active Substance: ARGATROBAN
     Indication: Thrombocytopenia
     Dosage: 2.5-3.5 UG/KG/H FOR 5 DAYS
     Route: 065
  2. BIVALIRUDIN [Concomitant]
     Active Substance: BIVALIRUDIN
     Dosage: 150-250 UG/KG/H FOR 4 DAYS

REACTIONS (1)
  - Ischaemic hepatitis [Unknown]
